FAERS Safety Report 5674155-5 (Version None)
Quarter: 2008Q1

REPORT INFORMATION
  Report Type: 
  Country: None (occurrence: None)
  Receive Date: 20080320
  Receipt Date: 20080317
  Transmission Date: 20080703
  Serious: Yes (Other)
  Sender: FDA-Public Use
  Company Number: ES-BRISTOL-MYERS SQUIBB COMPANY-14118046

PATIENT
  Age: 46 Year
  Sex: Male

DRUGS (3)
  1. PENTOXIFYLLINE [Suspect]
     Route: 048
  2. CAFFEINE CITRATE [Suspect]
     Indication: CHEST PAIN
     Dates: start: 20030101
  3. NITROGLYCERIN [Suspect]
     Indication: CHEST PAIN
     Route: 060
     Dates: start: 20030101

REACTIONS (4)
  - MYOCARDIAL INFARCTION [None]
  - OEDEMA [None]
  - PRURITUS [None]
  - URTICARIA [None]
